FAERS Safety Report 5947763-1 (Version None)
Quarter: 2008Q4

REPORT INFORMATION
  Report Type: 
  Country: None (occurrence: None)
  Receive Date: 20081111
  Receipt Date: 20081102
  Transmission Date: 20090506
  Serious: Yes (Other)
  Sender: FDA-Public Use
  Company Number: US-JNJFOC-20081100804

PATIENT
  Sex: Female

DRUGS (2)
  1. EXTRA STRENGTH TYLENOL [Suspect]
     Indication: DRUG USE FOR UNKNOWN INDICATION
     Route: 048
  2. VODKA [Suspect]
     Indication: DRUG USE FOR UNKNOWN INDICATION
     Dosage: ^SOME^ (NOT FURTHER SPECIFIED)

REACTIONS (1)
  - INTENTIONAL OVERDOSE [None]
